FAERS Safety Report 5521445-2 (Version None)
Quarter: 2007Q4

REPORT INFORMATION
  Report Type: 
  Country: None (occurrence: None)
  Receive Date: 20071119
  Receipt Date: 20071108
  Transmission Date: 20080405
  Serious: Yes (Hospitalization, Other)
  Sender: FDA-Public Use
  Company Number: US-PFIZER INC-2004071943

PATIENT
  Sex: Female
  Weight: 67.6 kg

DRUGS (8)
  1. NARDIL [Suspect]
     Indication: DEPRESSION
     Route: 048
  2. NARDIL [Suspect]
     Route: 048
     Dates: start: 20070201, end: 20070201
  3. KLONOPIN [Concomitant]
     Route: 048
  4. SYNTHROID [Concomitant]
     Route: 048
  5. LEXAPRO [Concomitant]
  6. ANASTROZOLE [Concomitant]
  7. ZOCOR [Concomitant]
  8. FOSAMAX [Concomitant]

REACTIONS (10)
  - ABNORMAL DREAMS [None]
  - ANXIETY [None]
  - DRUG INEFFECTIVE [None]
  - FALL [None]
  - FEAR [None]
  - HEAD INJURY [None]
  - NIGHTMARE [None]
  - SURGERY [None]
  - TOOTHACHE [None]
  - WEIGHT DECREASED [None]
